FAERS Safety Report 24550418 (Version 1)
Quarter: 2024Q4

REPORT INFORMATION
  Report Type: Spontaneous
  Country: US (occurrence: US)
  Receive Date: 20241025
  Receipt Date: 20241025
  Transmission Date: 20250115
  Serious: Yes (Other)
  Sender: BAYER HEALTHCARE LLC
  Company Number: US-BAYER-2024A150941

PATIENT
  Age: 77 Year
  Sex: Male

DRUGS (6)
  1. ASPIRIN [Suspect]
     Active Substance: ASPIRIN
  2. CALCIUM CARBONATE [Suspect]
     Active Substance: CALCIUM CARBONATE
  3. ALKA-SELTZER [Suspect]
     Active Substance: ANHYDROUS CITRIC ACID\ASPIRIN\SODIUM BICARBONATE
  4. ACETAMINOPHEN [Suspect]
     Active Substance: ACETAMINOPHEN
  5. MORPHINE [Suspect]
     Active Substance: MORPHINE
  6. IBUPROFEN [Suspect]
     Active Substance: IBUPROFEN

REACTIONS (2)
  - Anaphylactic reaction [None]
  - Drug hypersensitivity [None]
